FAERS Safety Report 5523248-1 (Version None)
Quarter: 2007Q4

REPORT INFORMATION
  Report Type: 
  Country: None (occurrence: None)
  Receive Date: 20071116
  Receipt Date: 20071116
  Transmission Date: 20080405
  Serious: Yes (Hospitalization)
  Sender: FDA-Public Use
  Company Number: None

PATIENT
  Sex: Female
  Weight: 77 kg

DRUGS (2)
  1. CYCLOPHOSPHAMIDE [Suspect]
     Dosage: 1146 MG
  2. DOXORUBICIN HYDROCHLORIDE [Suspect]
     Dosage: 115 MG

REACTIONS (3)
  - BLOOD CULTURE POSITIVE [None]
  - STAPHYLOCOCCAL INFECTION [None]
  - STOMATITIS [None]
